FAERS Safety Report 5040178-2 (Version None)
Quarter: 2006Q2

REPORT INFORMATION
  Report Type: 
  Country: None (occurrence: None)
  Receive Date: 20060630
  Receipt Date: 20051210
  Transmission Date: 20061013
  Serious: Yes (Other)
  Sender: FDA-Public Use
  Company Number: US-AVENTIS-200520444US

PATIENT
  Sex: Female
  Weight: 72.6 kg

DRUGS (14)
  1. LANTUS [Suspect]
     Dosage: DOSE UNIT: UNITS
     Route: 058
  2. LANTUS [Suspect]
     Dosage: DOSE UNIT: UNITS
     Route: 058
  3. OPTICLIK (INSULIN INJECTION PEN) [Suspect]
  4. GLYBURIDE [Concomitant]
     Dosage: DOSE: UNK
  5. DETROL [Concomitant]
     Dosage: DOSE: UNK
  6. INDERAL [Concomitant]
     Dosage: DOSE: UNK
  7. FUROSEMIDE [Concomitant]
     Dosage: DOSE: UNK
  8. LISINOPRIL [Concomitant]
     Dosage: DOSE: UNK
  9. FERROUS SULFATE TAB [Concomitant]
     Dosage: DOSE: UNK
  10. HYDROCHLOROTHIAZIDE [Concomitant]
     Dosage: DOSE: UNK
  11. MULTIVITAMINS, PLAIN [Concomitant]
     Dosage: DOSE: UNK
  12. ACTOS [Concomitant]
     Dosage: DOSE: UNK
  13. ZOLOFT [Concomitant]
     Dosage: DOSE: UNK
  14. ACTONEL [Concomitant]
     Dosage: DOSE: UNK

REACTIONS (9)
  - DYSPNOEA [None]
  - FALL [None]
  - FEELING HOT [None]
  - HYPERHIDROSIS [None]
  - HYPOGLYCAEMIA [None]
  - INCORRECT DOSE ADMINISTERED [None]
  - NERVOUSNESS [None]
  - PHARMACEUTICAL PRODUCT COMPLAINT [None]
  - UPPER LIMB FRACTURE [None]
